FAERS Safety Report 20126511 (Version 1)
Quarter: 2021Q4

REPORT INFORMATION
  Report Type: Spontaneous
  Country: US (occurrence: US)
  Receive Date: 20211129
  Receipt Date: 20211129
  Transmission Date: 20220303
  Serious: Yes (Other)
  Sender: FDA-Public Use
  Company Number: US-MYLANLABS-2021M1087840

PATIENT
  Age: 67 Year
  Sex: Female

DRUGS (5)
  1. FEXOFENADINE [Suspect]
     Active Substance: FEXOFENADINE HYDROCHLORIDE
     Indication: Mastocytosis
     Dosage: UNK
     Route: 065
  2. GABAPENTIN [Suspect]
     Active Substance: GABAPENTIN
     Indication: Mastocytosis
     Dosage: 3000 MILLIGRAM, QD
     Route: 065
  3. GABAPENTIN [Suspect]
     Active Substance: GABAPENTIN
     Dosage: UNK, DOSE DECREASED
     Route: 065
  4. CROMOLYN SODIUM [Suspect]
     Active Substance: CROMOLYN SODIUM
     Indication: Mastocytosis
     Dosage: UNK
     Route: 048
  5. IMATINIB [Suspect]
     Active Substance: IMATINIB
     Indication: Mastocytosis
     Dosage: 400 MILLIGRAM, QD
     Route: 065

REACTIONS (4)
  - Sedation [Unknown]
  - Impaired work ability [Unknown]
  - Drug ineffective [Unknown]
  - Off label use [Unknown]
